FAERS Safety Report 10253124 (Version 1)
Quarter: 2014Q2

REPORT INFORMATION
  Report Type: Spontaneous
  Country: US (occurrence: US)
  Receive Date: 20140623
  Receipt Date: 20140623
  Transmission Date: 20141212
  Serious: No
  Sender: FDA-Public Use
  Company Number: US-ZOGENIX, INC.-2011ZX000415

PATIENT
  Sex: Female
  Weight: 81.72 kg

DRUGS (6)
  1. SUMAVEL DOSEPRO [Suspect]
     Indication: MIGRAINE
  2. TOPAMAX [Concomitant]
     Indication: MIGRAINE
     Route: 048
  3. LEXAPRO [Concomitant]
     Indication: PRODUCT USED FOR UNKNOWN INDICATION
     Route: 048
  4. ZANAFLEX [Concomitant]
     Indication: SLEEP DISORDER
     Route: 048
  5. CONTRACEPTIVES [Concomitant]
     Indication: CONTRACEPTION
  6. XYZAL [Concomitant]
     Indication: ANTIALLERGIC THERAPY

REACTIONS (1)
  - Injection site pain [Recovered/Resolved]
